FAERS Safety Report 7540625-8 (Version None)
Quarter: 2011Q2

REPORT INFORMATION
  Report Type: 
  Country: None (occurrence: None)
  Receive Date: 20110610
  Receipt Date: 20110606
  Transmission Date: 20111010
  Serious: Yes (Hospitalization, Other)
  Sender: FDA-Public Use
  Company Number: DE-PFIZER INC-2011101567

PATIENT
  Age: 73 Year
  Sex: Male
  Weight: 76 kg

DRUGS (1)
  1. SUTENT [Suspect]
     Dosage: UNK
     Dates: start: 20110328

REACTIONS (1)
  - DEAFNESS [None]
